FAERS Safety Report 9974819 (Version 1)
Quarter: 2014Q1

REPORT INFORMATION
  Report Type: Report from Study
  Country: US (occurrence: US)
  Receive Date: 20140306
  Receipt Date: 20140306
  Transmission Date: 20141002
  Serious: No
  Sender: FDA-Public Use
  Company Number: US-ABBVIE-13P-163-1155105-00

PATIENT
  Age: 13 Year
  Sex: Male

DRUGS (11)
  1. HUMIRA [Suspect]
     Indication: JUVENILE IDIOPATHIC ARTHRITIS
     Dates: start: 201302, end: 201308
  2. HUMIRA [Suspect]
     Dates: start: 201308
  3. NAPROSYN [Concomitant]
     Indication: PRODUCT USED FOR UNKNOWN INDICATION
  4. ZANTAC [Concomitant]
     Indication: PRODUCT USED FOR UNKNOWN INDICATION
  5. ALLEGRA [Concomitant]
     Indication: PRODUCT USED FOR UNKNOWN INDICATION
     Dosage: 180MG DAILY
  6. ADDERALL [Concomitant]
     Indication: PRODUCT USED FOR UNKNOWN INDICATION
     Dosage: ON SCHOOL DAYS
  7. FLOVENT [Concomitant]
     Indication: PRODUCT USED FOR UNKNOWN INDICATION
  8. TOPAMAX [Concomitant]
     Indication: MIGRAINE
     Dosage: 50MG IN MORNING, 50MG EVENING
  9. TOPAMAX [Concomitant]
     Dosage: 25MG IN MORNING, 50MG IN EVENING
  10. SINGULAIR [Concomitant]
     Dosage: 5MG DAILY
  11. SINGULAIR [Concomitant]
     Dosage: 10MG DAILY

REACTIONS (1)
  - Juvenile idiopathic arthritis [Recovered/Resolved]
